FAERS Safety Report 8918048 (Version 2)
Quarter: 2013Q1

REPORT INFORMATION
  Report Type: Spontaneous
  Country: US (occurrence: US)
  Receive Date: 20121120
  Receipt Date: 20130326
  Transmission Date: 20140127
  Serious: No
  Sender: FDA-Public Use
  Company Number: US-ASTRAZENECA-2012SE11890

PATIENT
  Age: 55 Year
  Sex: Female

DRUGS (13)
  1. NEXIUM [Suspect]
     Route: 048
  2. CRESTOR [Suspect]
     Dosage: HALF TABLET, EVERY DAY
     Route: 048
  3. CRESTOR [Suspect]
     Route: 048
  4. CRESTOR [Suspect]
     Route: 048
  5. LISINOPRIL [Suspect]
     Route: 048
     Dates: start: 20120424
  6. ADVAIR DISKUS [Concomitant]
  7. DIABETA [Concomitant]
  8. FREESTYLE LANCET [Concomitant]
  9. GLUCOPHAGE [Concomitant]
  10. METOPROLOL TARTRATE [Concomitant]
  11. PAXIL [Concomitant]
  12. MIRAPEX [Concomitant]
  13. COUMADIN [Concomitant]

REACTIONS (3)
  - Liver function test abnormal [Unknown]
  - Vomiting [Unknown]
  - Drug dose omission [Unknown]
